FAERS Safety Report 7096275-3 (Version None)
Quarter: 2010Q4

REPORT INFORMATION
  Report Type: 
  Country: None (occurrence: None)
  Receive Date: 20101103
  Receipt Date: 20101018
  Transmission Date: 20110411
  Serious: Yes (Hospitalization, Other)
  Sender: FDA-Public Use
  Company Number: DSA_43891_2010

PATIENT
  Sex: Male

DRUGS (3)
  1. BUPROPION HYDROCHLORIDE [Suspect]
     Indication: DEPRESSIVE SYMPTOM
     Dosage: 300 MG DAILY ORAL
     Route: 048
     Dates: start: 20100203
  2. RITALINA LA [Concomitant]
  3. MIRTAZAPINE [Concomitant]

REACTIONS (4)
  - CONDITION AGGRAVATED [None]
  - INCORRECT DOSE ADMINISTERED [None]
  - MANIA [None]
  - TREATMENT NONCOMPLIANCE [None]
